FAERS Safety Report 8585260-8 (Version None)
Quarter: 2012Q3

REPORT INFORMATION
  Report Type: 
  Country: None (occurrence: None)
  Receive Date: 20120810
  Receipt Date: 20120807
  Transmission Date: 20120928
  Serious: Yes (Hospitalization, Other)
  Sender: FDA-Public Use
  Company Number: PHHY2011US50747

PATIENT
  Sex: Female
  Weight: 79.819 kg

DRUGS (5)
  1. EXJADE [Suspect]
     Indication: HAEMOSIDEROSIS
     Dosage: 1000 MG, DAILY
     Route: 048
  2. METHADONE HYDROCHLORIDE [Concomitant]
     Indication: PAIN
     Dosage: 40 MG, TID
     Route: 048
  3. FOLIC ACID [Concomitant]
     Indication: SICKLE CELL ANAEMIA
     Dosage: 1 MG, DAILY
     Route: 048
  4. LANOXIN [Concomitant]
     Indication: CARDIOMEGALY
     Dosage: 0.125 MG, DAILY
     Route: 048
     Dates: start: 20120121
  5. VIAGRA [Concomitant]
     Indication: PULMONARY HYPERTENSION
     Dosage: 20 MG, DAILY
     Route: 048
     Dates: start: 20120121

REACTIONS (11)
  - SICKLE CELL ANAEMIA WITH CRISIS [None]
  - DIARRHOEA [None]
  - PYREXIA [None]
  - NAUSEA [None]
  - PNEUMONIA [None]
  - PAIN [None]
  - ASPARTATE AMINOTRANSFERASE INCREASED [None]
  - ALANINE AMINOTRANSFERASE INCREASED [None]
  - BLOOD CREATININE DECREASED [None]
  - ABDOMINAL PAIN [None]
  - VOMITING [None]
